FAERS Safety Report 7060415-2 (Version None)
Quarter: 2010Q4

REPORT INFORMATION
  Report Type: 
  Country: None (occurrence: None)
  Receive Date: 20101025
  Receipt Date: 20101014
  Transmission Date: 20110411
  Serious: Yes (Other)
  Sender: FDA-Public Use
  Company Number: CA-JNJFOC-20101004373

PATIENT
  Sex: Male

DRUGS (11)
  1. REMICADE [Suspect]
     Indication: PSORIASIS
     Route: 042
  2. OMEPRAZOLE [Concomitant]
  3. PLAQUENIL [Concomitant]
  4. CORTODERM NOS [Concomitant]
  5. NERISONE [Concomitant]
  6. METHOTREXATE [Concomitant]
  7. DOVONEX [Concomitant]
  8. CLOBETASOL PROPIONATE [Concomitant]
     Dosage: BID PRN
  9. NASACORT [Concomitant]
  10. VALISONE [Concomitant]
  11. AERIUS [Concomitant]
     Dosage: DOSAGE REPORTED AS 1 CO  FREQUENCY REPORTED AS DIE

REACTIONS (2)
  - ARRHYTHMIA [None]
  - LOSS OF CONSCIOUSNESS [None]
